FAERS Safety Report 7187243-1 (Version None)
Quarter: 2010Q4

REPORT INFORMATION
  Report Type: 
  Country: None (occurrence: None)
  Receive Date: 20101222
  Receipt Date: 20101213
  Transmission Date: 20110411
  Serious: Yes (Hospitalization, Other)
  Sender: FDA-Public Use
  Company Number: US-ELI_LILLY_AND_COMPANY-US201006000290

PATIENT
  Sex: Female

DRUGS (18)
  1. FORTEO [Suspect]
     Indication: OSTEOPOROSIS
     Dosage: 20 UG, DAILY (1/D)
     Route: 065
     Dates: start: 20100303
  2. FORTEO [Suspect]
     Dosage: 20 UG, DAILY (1/D)
  3. FORTEO [Suspect]
     Dosage: 20 UG, DAILY (1/D)
  4. ALPRAZOLAM [Concomitant]
     Dosage: 0.25 MG, 2/D
     Route: 065
  5. CALTRATE [Concomitant]
  6. CYMBALTA [Concomitant]
  7. PREVACID [Concomitant]
  8. ZETIA [Concomitant]
  9. VITAMIN B-12 [Concomitant]
  10. BYSTOLIC [Concomitant]
  11. HYDROCODONE BITARTRATE [Concomitant]
  12. ASPIRIN [Concomitant]
     Dosage: 81 MG, UNKNOWN
  13. CO-Q10 [Concomitant]
  14. CRESTOR [Concomitant]
  15. LUNESTA [Concomitant]
  16. PRIMIDONE [Concomitant]
  17. TOVIAZ [Concomitant]
  18. SEROQUEL [Concomitant]

REACTIONS (6)
  - BACK PAIN [None]
  - COMPRESSION FRACTURE [None]
  - DIVERTICULITIS [None]
  - GROIN PAIN [None]
  - INJECTION SITE PAIN [None]
  - LARGE INTESTINE PERFORATION [None]
